FAERS Safety Report 10970004 (Version 1)
Quarter: 2015Q1

REPORT INFORMATION
  Report Type: Spontaneous
  Country: GB (occurrence: GB)
  Receive Date: 20150331
  Receipt Date: 20150331
  Transmission Date: 20150721
  Serious: Yes (Other)
  Sender: FDA-Public Use
  Company Number: GB-TEVA-550154ACC

PATIENT
  Age: 56 Year
  Sex: Female
  Weight: 53.97 kg

DRUGS (5)
  1. ESCITALOPRAM [Concomitant]
     Active Substance: ESCITALOPRAM OXALATE
  2. LEVOTHYROXINE [Concomitant]
     Active Substance: LEVOTHYROXINE
  3. RAMIPRIL. [Concomitant]
     Active Substance: RAMIPRIL
  4. ALENDRONIC ACID [Suspect]
     Active Substance: ALENDRONIC ACID
     Indication: OSTEOPOROSIS
     Route: 048
     Dates: start: 20140606, end: 20150225
  5. AMLODIPINE [Concomitant]
     Active Substance: AMLODIPINE BESYLATE

REACTIONS (4)
  - Tooth infection [Not Recovered/Not Resolved]
  - Malaise [Not Recovered/Not Resolved]
  - Loose tooth [Not Recovered/Not Resolved]
  - Abdominal pain upper [Not Recovered/Not Resolved]
